FAERS Safety Report 21530855 (Version 1)
Quarter: 2022Q4

REPORT INFORMATION
  Report Type: Spontaneous
  Country: US (occurrence: None)
  Receive Date: 20221030
  Receipt Date: 20221030
  Transmission Date: 20230113
  Serious: Yes (Disabling, Other)
  Sender: FDA-Public Use
  Company Number: None

PATIENT
  Age: 60 Year
  Sex: Female
  Weight: 67.5 kg

DRUGS (1)
  1. STELARA [Suspect]
     Active Substance: USTEKINUMAB
     Indication: Drug therapy
     Dates: start: 20200508

REACTIONS (1)
  - Skin cancer [None]

NARRATIVE: CASE EVENT DATE: 20221017
